FAERS Safety Report 5327025-6 (Version None)
Quarter: 2007Q2

REPORT INFORMATION
  Report Type: 
  Country: None (occurrence: None)
  Receive Date: 20070517
  Receipt Date: 20070507
  Transmission Date: 20071010
  Serious: Yes (Hospitalization, Other)
  Sender: FDA-Public Use
  Company Number: JP-JNJFOC-20060504080

PATIENT
  Sex: Female

DRUGS (13)
  1. REMICADE [Suspect]
     Route: 042
  2. REMICADE [Suspect]
     Route: 042
  3. REMICADE [Suspect]
     Indication: RHEUMATOID ARTHRITIS
     Route: 042
  4. PREDNISOLONE [Concomitant]
  5. AZULFIDINE EN-TABS [Concomitant]
     Route: 048
  6. BONALON [Concomitant]
     Route: 048
  7. LASIX [Concomitant]
     Route: 048
  8. MINOCYCLINE HCL [Concomitant]
  9. CONIEL [Concomitant]
     Route: 048
  10. RHEUMATREX [Concomitant]
     Route: 048
  11. ZANTAC [Concomitant]
  12. HYPEN [Concomitant]
     Route: 048
  13. OPALMON [Concomitant]

REACTIONS (3)
  - CRYPTOGENIC ORGANISING PNEUMONIA [None]
  - INFECTION [None]
  - PNEUMONIA BACTERIAL [None]
